FAERS Safety Report 8825856 (Version 2)
Quarter: 2013Q1

REPORT INFORMATION
  Report Type: Spontaneous
  Country: US (occurrence: US)
  Receive Date: 20121004
  Receipt Date: 20130121
  Transmission Date: 20140127
  Serious: No
  Sender: FDA-Public Use
  Company Number: US-009507513-1210USA002040

PATIENT
  Sex: Female
  Weight: 81.63 kg

DRUGS (3)
  1. MIRALAX [Suspect]
     Indication: PRODUCT USED FOR UNKNOWN INDICATION
     Dosage: 17 MG, QPM
     Route: 048
     Dates: start: 201208, end: 201208
  2. MIRALAX [Suspect]
     Indication: MEDICAL OBSERVATION
  3. ASPIRIN [Concomitant]
     Indication: BACK DISORDER
     Dosage: UNK, UNKNOWN

REACTIONS (3)
  - Flatulence [Recovered/Resolved]
  - Drug ineffective [Unknown]
  - Incorrect drug administration duration [Unknown]
